FAERS Safety Report 22808734 (Version 4)
Quarter: 2024Q1

REPORT INFORMATION
  Report Type: Spontaneous
  Country: US (occurrence: US)
  Receive Date: 20230810
  Receipt Date: 20240105
  Transmission Date: 20240410
  Serious: Yes (Hospitalization, Other)
  Sender: FDA-Public Use
  Company Number: US-PFIZER INC-PV202300070346

PATIENT
  Age: 70 Year
  Sex: Female

DRUGS (2)
  1. IBRANCE [Suspect]
     Active Substance: PALBOCICLIB
     Indication: Hormone receptor positive HER2 negative breast cancer
     Dosage: 125 MG
  2. IBRANCE [Suspect]
     Active Substance: PALBOCICLIB
     Dosage: TAKE 1 TAB DAILY FOR 3 WEEKS-1 WEEK OFF/ TAKE 1 TABLET (125 MG) DAILY BY MOUTH 2 WK ON/ 2WK OFF/ )
     Route: 048

REACTIONS (2)
  - Pneumothorax [Unknown]
  - Slow speech [Unknown]
